FAERS Safety Report 21402981 (Version 1)
Quarter: 2022Q4

REPORT INFORMATION
  Report Type: Spontaneous
  Country: CN (occurrence: CN)
  Receive Date: 20221003
  Receipt Date: 20221003
  Transmission Date: 20230113
  Serious: Yes (Other)
  Sender: FDA-Public Use
  Company Number: CN-JNJFOC-20220955836

PATIENT
  Age: 11 Day
  Sex: Male
  Weight: 1.69 kg

DRUGS (4)
  1. CHILDRENS MOTRIN [Suspect]
     Active Substance: IBUPROFEN
     Indication: Patent ductus arteriosus
     Route: 048
     Dates: start: 20220831, end: 20220831
  2. CHILDRENS MOTRIN [Suspect]
     Active Substance: IBUPROFEN
     Route: 048
     Dates: start: 20220901, end: 20220901
  3. CHILDRENS MOTRIN [Suspect]
     Active Substance: IBUPROFEN
     Route: 048
     Dates: start: 20220902, end: 20220902
  4. PORACTANT ALFA [Concomitant]
     Active Substance: PORACTANT ALFA
     Indication: Neonatal respiratory distress syndrome
     Route: 065
     Dates: start: 20220820, end: 20220820

REACTIONS (1)
  - Urine output decreased [Recovered/Resolved]

NARRATIVE: CASE EVENT DATE: 20220831
